FAERS Safety Report 10399283 (Version 1)
Quarter: 2014Q3

REPORT INFORMATION
  Report Type: Spontaneous
  Country: US (occurrence: US)
  Receive Date: 20140821
  Receipt Date: 20140821
  Transmission Date: 20150326
  Serious: Yes (Other)
  Sender: FDA-Public Use
  Company Number: US-TEVA-503901USA

PATIENT
  Age: 35 Year
  Sex: Female
  Weight: 48.58 kg

DRUGS (4)
  1. HYDROXYCHLOROQUINE [Concomitant]
     Active Substance: HYDROXYCHLOROQUINE
     Indication: MIXED CONNECTIVE TISSUE DISEASE
     Dosage: 200 MILLIGRAM DAILY;
     Route: 048
  2. PARAGARD T380A [Suspect]
     Active Substance: COPPER
     Indication: CONTRACEPTION
     Route: 015
     Dates: start: 20040305, end: 20140710
  3. AMLODIPINE [Concomitant]
     Active Substance: AMLODIPINE BESYLATE
     Indication: RAYNAUD^S PHENOMENON
     Dosage: 2.5 MILLIGRAM DAILY;
     Route: 048
  4. VITAMIN D [Concomitant]
     Active Substance: CHOLECALCIFEROL
     Indication: VITAMIN SUPPLEMENTATION
     Dosage: 2000 IU (INTERNATIONAL UNIT) DAILY;
     Route: 048

REACTIONS (2)
  - Device breakage [Recovered/Resolved]
  - Expired device used [Recovered/Resolved]

NARRATIVE: CASE EVENT DATE: 20040305
